FAERS Safety Report 6122847-6 (Version None)
Quarter: 2009Q1

REPORT INFORMATION
  Report Type: 
  Country: None (occurrence: None)
  Receive Date: 20090318
  Receipt Date: 20090313
  Transmission Date: 20090719
  Serious: Yes (Other)
  Sender: FDA-Public Use
  Company Number: B0539589A

PATIENT
  Age: 38 Year
  Sex: Male
  Weight: 58 kg

DRUGS (22)
  1. ARRANON [Suspect]
     Indication: T-CELL TYPE ACUTE LEUKAEMIA
     Dosage: 2600MG PER DAY
     Route: 042
     Dates: start: 20080402, end: 20080423
  2. KYTRIL [Concomitant]
     Indication: PROPHYLAXIS OF NAUSEA AND VOMITING
     Dosage: 3MG TWICE PER DAY
     Dates: start: 20080423, end: 20080423
  3. SEISHOKU [Concomitant]
     Dates: start: 20080423, end: 20080429
  4. MEYLON [Concomitant]
     Dates: start: 20080423, end: 20080429
  5. DEXTROSE 5% [Concomitant]
     Dates: start: 20080423, end: 20080429
  6. UNKNOWN DRUG [Concomitant]
     Dates: start: 20080423, end: 20080429
  7. TAKEPRON [Concomitant]
     Dosage: 30MG PER DAY
     Route: 048
     Dates: start: 20080130, end: 20081120
  8. MAGMITT [Concomitant]
     Dosage: 330MG THREE TIMES PER DAY
     Route: 048
     Dates: start: 20080201, end: 20081120
  9. ITRIZOLE [Concomitant]
     Indication: PROPHYLAXIS
     Dosage: 100MG TWICE PER DAY
     Route: 048
     Dates: start: 20080403, end: 20081120
  10. UNKNOWN DRUG [Concomitant]
     Indication: PROPHYLAXIS
     Dosage: 200MG THREE TIMES PER DAY
     Route: 048
     Dates: start: 20080122, end: 20081120
  11. ZYLORIC [Concomitant]
     Indication: PROPHYLAXIS
     Dosage: 100MG THREE TIMES PER DAY
     Route: 048
     Dates: start: 20080122, end: 20081120
  12. BAKTAR [Concomitant]
     Indication: PROPHYLAXIS
     Route: 048
     Dates: start: 20080122, end: 20081120
  13. UNASYN [Concomitant]
     Indication: INFECTION
     Dates: start: 20080314, end: 20080422
  14. TRIFLUID [Concomitant]
     Indication: FLUID REPLACEMENT
     Dates: start: 20080125, end: 20081125
  15. MAXIPIME [Concomitant]
     Indication: INFECTION
     Dates: start: 20080126, end: 20081125
  16. UNKNOWN DRUG [Concomitant]
     Indication: NEOPLASM MALIGNANT
     Dates: start: 20080126, end: 20080128
  17. CYTARABINE [Concomitant]
     Indication: NEOPLASM MALIGNANT
     Dates: start: 20080126, end: 20080201
  18. CYCLOPHOSPHAMIDE [Concomitant]
     Indication: NEOPLASM MALIGNANT
     Dates: start: 20080218
  19. MITOXANTRONE HYDROCHLORIDE [Concomitant]
     Indication: NEOPLASM MALIGNANT
     Dates: start: 20080425
  20. VINCRISTINE SULFATE [Concomitant]
     Indication: NEOPLASM MALIGNANT
     Dates: start: 20080218, end: 20080225
  21. ELSPAR [Concomitant]
     Indication: NEOPLASM MALIGNANT
     Dates: start: 20080226, end: 20080301
  22. DAUNORUBICIN HYDROCHLORIDE [Concomitant]
     Indication: NEOPLASM MALIGNANT
     Dates: start: 20080218, end: 20080220

REACTIONS (2)
  - MOBILITY DECREASED [None]
  - VERTIGO [None]
